FAERS Safety Report 7416046-5 (Version None)
Quarter: 2011Q2

REPORT INFORMATION
  Report Type: 
  Country: None (occurrence: None)
  Receive Date: 20110414
  Receipt Date: 20110405
  Transmission Date: 20111010
  Serious: Yes (Other)
  Sender: FDA-Public Use
  Company Number: US-CEPHALON-2011001673

PATIENT
  Sex: Female

DRUGS (2)
  1. ALBUTEROL [Interacting]
     Indication: ASTHMA
  2. PROVIGIL [Suspect]
     Route: 048

REACTIONS (4)
  - DRUG INTERACTION [None]
  - PALPITATIONS [None]
  - FEELING JITTERY [None]
  - PSYCHOMOTOR HYPERACTIVITY [None]
